FAERS Safety Report 9250649 (Version 1)
Quarter: 2013Q1

REPORT INFORMATION
  Report Type: Spontaneous
  Country: US (occurrence: None)
  Receive Date: 20130305
  Receipt Date: 20130305
  Transmission Date: 20140127
  Serious: Yes (Hospitalization)
  Sender: FDA-Public Use
  Company Number: 163-21880-12082421

PATIENT
  Age: 81 Year
  Sex: Female

DRUGS (4)
  1. REVLIMID [Suspect]
     Indication: PLASMA CELL MYELOMA
     Dosage: 10 MG, 21 IN 21 D, PO
     Route: 048
     Dates: start: 20120620
  2. HYDROXYZINE HCL (HYDROXYZINE HYDROCHLORIDE) [Concomitant]
  3. ONDANSETRON HCL (ONDANSETRON HYDROCHLORIDE) [Concomitant]
  4. DILAUDID (HYDROMORPHONE HYDROCHLORIDE) [Concomitant]

REACTIONS (2)
  - Bacteraemia [None]
  - Urinary tract infection [None]
